FAERS Safety Report 20928431 (Version 1)
Quarter: 2022Q2

REPORT INFORMATION
  Report Type: Spontaneous
  Country: US (occurrence: US)
  Receive Date: 20220607
  Receipt Date: 20220607
  Transmission Date: 20220721
  Serious: No
  Sender: FDA-Public Use
  Company Number: US-PERRIGO-22US003138

PATIENT
  Age: 48 Year
  Sex: Male
  Weight: 97.506 kg

DRUGS (3)
  1. MINOXIDIL [Suspect]
     Active Substance: MINOXIDIL
     Indication: Product used for unknown indication
     Dosage: 1/2 CAPFUL, BID
     Route: 061
     Dates: start: 20220216
  2. MINOXIDIL [Suspect]
     Active Substance: MINOXIDIL
     Indication: Androgenetic alopecia
     Dosage: 1/2 CAPFUL, QD
     Route: 061
     Dates: start: 20220217, end: 20220221
  3. FINASTERIDE [Concomitant]
     Active Substance: FINASTERIDE
     Indication: Alopecia
     Dosage: UNKNOWN, UNKNOWN
     Route: 065
     Dates: start: 2012

REACTIONS (6)
  - Erythema [Recovering/Resolving]
  - Skin burning sensation [Recovering/Resolving]
  - Periorbital swelling [Recovering/Resolving]
  - Skin exfoliation [Recovering/Resolving]
  - Hypersensitivity [Recovering/Resolving]
  - Inappropriate schedule of product administration [Recovered/Resolved]

NARRATIVE: CASE EVENT DATE: 20220217
